FAERS Safety Report 4652571-8 (Version None)
Quarter: 2005Q2

REPORT INFORMATION
  Report Type: 
  Country: None (occurrence: None)
  Receive Date: 20050504
  Receipt Date: 20040325
  Transmission Date: 20051028
  Serious: Yes (Hospitalization)
  Sender: FDA-Public Use
  Company Number: BE-JNJFOC-20040202566

PATIENT
  Age: 4 Year
  Sex: Female
  Weight: 11 kg

DRUGS (8)
  1. PROPULSID [Suspect]
     Route: 065
  2. PROPULSID [Suspect]
     Route: 065
  3. ATROVENT [Concomitant]
     Route: 055
  4. FLUIMUCIL [Concomitant]
     Route: 055
  5. LOMUDAL [Concomitant]
     Route: 055
  6. SABRIL [Concomitant]
     Indication: EPILEPSY
     Route: 049
  7. DAKTOZIN [Concomitant]
     Route: 065
  8. DAKTOZIN [Concomitant]
     Indication: ERYTHEMA
     Route: 065

REACTIONS (3)
  - DENTAL CARIES [None]
  - DRUG INEFFECTIVE [None]
  - OESOPHAGITIS [None]
